FAERS Safety Report 8132812-5 (Version None)
Quarter: 2012Q1

REPORT INFORMATION
  Report Type: 
  Country: None (occurrence: None)
  Receive Date: 20120213
  Receipt Date: 20120207
  Transmission Date: 20120608
  Serious: Yes (Hospitalization)
  Sender: FDA-Public Use
  Company Number: CH-MERCK-1202USA01325

PATIENT
  Age: 76 Year
  Sex: Female
  Weight: 48 kg

DRUGS (10)
  1. FOSAMAX [Suspect]
     Indication: OSTEOPOROSIS
     Route: 048
     Dates: start: 20070501
  2. PREDNISONE TAB [Suspect]
     Route: 048
     Dates: start: 20090101
  3. ASPIRIN [Concomitant]
     Route: 048
  4. IRBESARTAN [Concomitant]
     Route: 048
  5. FELODIPINE [Concomitant]
     Route: 048
  6. MIRTAZAPINE [Concomitant]
     Route: 048
  7. CALCIORAL D3 [Concomitant]
     Route: 048
  8. PANTOPRAZOLE [Concomitant]
     Route: 065
  9. ALENDRONATE SODIUM [Suspect]
     Route: 048
  10. FOSAMAX [Suspect]
     Route: 048

REACTIONS (1)
  - FEMUR FRACTURE [None]
